FAERS Safety Report 9761234 (Version 1)
Quarter: 2013Q4

REPORT INFORMATION
  Report Type: Spontaneous
  Country: FR (occurrence: FR)
  Receive Date: 20131216
  Receipt Date: 20131216
  Transmission Date: 20140711
  Serious: Yes (Hospitalization)
  Sender: FDA-Public Use
  Company Number: FR-BRISTOL-MYERS SQUIBB COMPANY-19920339

PATIENT
  Age: 81 Year
  Sex: Female

DRUGS (3)
  1. METFORMIN HCL [Suspect]
     Route: 048
     Dates: start: 201307, end: 20130915
  2. SINEMET [Suspect]
     Dates: end: 20130915
  3. LEVOTHYROX [Suspect]
     Dosage: DOSE REDUCED TO 100 MCG/DAY
     Route: 048
     Dates: end: 20130915

REACTIONS (4)
  - Asthenia [Recovered/Resolved]
  - Decreased appetite [Recovered/Resolved]
  - Food aversion [Recovered/Resolved]
  - Headache [Recovered/Resolved]
